FAERS Safety Report 8475519-7 (Version None)
Quarter: 2012Q2

REPORT INFORMATION
  Report Type: 
  Country: None (occurrence: None)
  Receive Date: 20120628
  Receipt Date: 20120622
  Transmission Date: 20120825
  Serious: Yes (Other)
  Sender: FDA-Public Use
  Company Number: CA-ROCHE-GNE303022

PATIENT
  Sex: Female
  Weight: 75.08 kg

DRUGS (3)
  1. SYMBICORT [Concomitant]
     Indication: PRODUCT USED FOR UNKNOWN INDICATION
  2. VENTOLIN [Concomitant]
     Indication: PRODUCT USED FOR UNKNOWN INDICATION
  3. XOLAIR [Suspect]
     Indication: ASTHMA
     Dosage: 225 MG, Q2W
     Route: 058
     Dates: start: 20050718

REACTIONS (15)
  - RESPIRATORY RATE INCREASED [None]
  - HYPERSENSITIVITY [None]
  - INFLUENZA [None]
  - BLOOD PRESSURE INCREASED [None]
  - COUGH [None]
  - PRODUCTIVE COUGH [None]
  - NASOPHARYNGITIS [None]
  - BREATH SOUNDS ABNORMAL [None]
  - UPPER RESPIRATORY TRACT INFECTION [None]
  - NASAL CONGESTION [None]
  - WOUND [None]
  - PYREXIA [None]
  - PAIN IN EXTREMITY [None]
  - HEART RATE INCREASED [None]
  - MYALGIA [None]
